FAERS Safety Report 14632738 (Version 2)
Quarter: 2018Q1

REPORT INFORMATION
  Report Type: Other
  Country: IT (occurrence: IT)
  Receive Date: 20180313
  Receipt Date: 20180323
  Transmission Date: 20180509
  Serious: Yes (Hospitalization)
  Sender: FDA-Public Use
  Company Number: IT-TAKEDA-2018TEU001436

PATIENT
  Age: 89 Year
  Sex: Female

DRUGS (1)
  1. LANSOPRAZOLE. [Suspect]
     Active Substance: LANSOPRAZOLE
     Indication: GASTRODUODENAL HAEMORRHAGE
     Dosage: UNK
     Route: 065

REACTIONS (6)
  - Alanine aminotransferase increased [Recovered/Resolved]
  - Confusional state [Recovered/Resolved]
  - Blood urea increased [Recovered/Resolved]
  - C-reactive protein increased [Recovered/Resolved]
  - Urine magnesium decreased [Recovered/Resolved]
  - Urine phosphorus decreased [Recovered/Resolved]
